FAERS Safety Report 12340003 (Version 1)
Quarter: 2016Q2

REPORT INFORMATION
  Report Type: Spontaneous
  Country: US (occurrence: US)
  Receive Date: 20160506
  Receipt Date: 20160506
  Transmission Date: 20160815
  Serious: No
  Sender: FDA-Public Use
  Company Number: US-AMGEN-USASP2016055978

PATIENT
  Age: 69 Year
  Sex: Male

DRUGS (1)
  1. ENBREL [Suspect]
     Active Substance: ETANERCEPT
     Indication: POLYMYALGIA RHEUMATICA
     Dosage: 50 MG, QWK
     Route: 065
     Dates: start: 201604

REACTIONS (5)
  - Off label use [Unknown]
  - Wrong technique in product usage process [Unknown]
  - Device malfunction [Unknown]
  - Injection site pain [Unknown]
  - Injection site discomfort [Unknown]

NARRATIVE: CASE EVENT DATE: 201604
